FAERS Safety Report 11726808 (Version 1)
Quarter: 2015Q4

REPORT INFORMATION
  Report Type: Other
  Country: GB (occurrence: GB)
  Receive Date: 20151112
  Receipt Date: 20151112
  Transmission Date: 20160304
  Serious: Yes (Other)
  Sender: FDA-Public Use
  Company Number: GB-APOTEX-2015AP014130

PATIENT
  Age: 68 Year
  Sex: Female
  Weight: 56.24 kg

DRUGS (1)
  1. ALENDRONATE [Suspect]
     Active Substance: ALENDRONATE SODIUM
     Indication: OSTEOPOROSIS
     Dosage: 1 DF, Q.WK.
     Route: 048

REACTIONS (2)
  - Pruritus genital [Recovered/Resolved]
  - Alopecia [Recovered/Resolved]
